FAERS Safety Report 22537133 (Version 2)
Quarter: 2023Q2

REPORT INFORMATION
  Report Type: Spontaneous
  Country: US (occurrence: US)
  Receive Date: 20230608
  Receipt Date: 20230610
  Transmission Date: 20230721
  Serious: No
  Sender: FDA-Public Use
  Company Number: US-002147023-NVSC2023US130963

PATIENT
  Sex: Male

DRUGS (4)
  1. TAFINLAR [Suspect]
     Active Substance: DABRAFENIB MESYLATE
     Indication: Bile duct cancer
     Dosage: 150 MG, BID
     Route: 048
     Dates: start: 202304
  2. TAFINLAR [Suspect]
     Active Substance: DABRAFENIB MESYLATE
     Indication: Cholangiocarcinoma
     Dosage: 100 MG, Q12H
     Route: 065
  3. MEKINIST [Suspect]
     Active Substance: TRAMETINIB DIMETHYL SULFOXIDE
     Indication: Bile duct cancer
     Dosage: 2 MG, QD
     Route: 048
     Dates: start: 202304
  4. MEKINIST [Suspect]
     Active Substance: TRAMETINIB DIMETHYL SULFOXIDE
     Indication: Cholangiocarcinoma
     Dosage: 1.5 MG, QD
     Route: 065

REACTIONS (1)
  - Rash [Unknown]
